FAERS Safety Report 8217787-2 (Version None)
Quarter: 2012Q1

REPORT INFORMATION
  Report Type: 
  Country: None (occurrence: None)
  Receive Date: 20120319
  Receipt Date: 20120308
  Transmission Date: 20120608
  Serious: Yes (Other)
  Sender: FDA-Public Use
  Company Number: DK-JNJFOC-20120212932

PATIENT
  Sex: Female

DRUGS (11)
  1. PREDNISOLONE [Concomitant]
     Dates: start: 20051213
  2. REMICADE [Suspect]
     Indication: RHEUMATOID ARTHRITIS
     Route: 042
     Dates: start: 20071108
  3. METHOTREXATE [Suspect]
     Indication: RHEUMATOID ARTHRITIS
     Route: 048
     Dates: start: 20071121, end: 20071127
  4. METHOTREXATE [Suspect]
     Route: 048
     Dates: start: 20070604
  5. METHOTREXATE [Suspect]
     Route: 048
     Dates: start: 20070313, end: 20070521
  6. METHOTREXATE [Suspect]
     Route: 050
     Dates: start: 20100423
  7. METHOTREXATE [Suspect]
     Route: 048
     Dates: start: 20031014, end: 20060608
  8. METHOTREXATE [Suspect]
     Route: 050
     Dates: start: 20071127, end: 20100412
  9. REMICADE [Suspect]
     Route: 042
     Dates: start: 20021126
  10. METHOTREXATE [Suspect]
     Route: 050
     Dates: start: 20100412, end: 20100423
  11. METHOTREXATE [Suspect]
     Dosage: DOSE VARIED BETWEEN 25 MG AND 10 MG PER WEEK DEPENDING ON DISEASE ACTIVITY AND TOLERANCE
     Route: 050
     Dates: end: 20110701

REACTIONS (2)
  - THYROID CANCER [None]
  - LUNG ADENOCARCINOMA [None]
